FAERS Safety Report 8852190 (Version 1)
Quarter: 2012Q4

REPORT INFORMATION
  Report Type: 
  Country: CA (occurrence: CA)
  Receive Date: 20121022
  Receipt Date: 20121022
  Transmission Date: 20130627
  Serious: Yes (Other)
  Sender: FDA-Public Use
  Company Number: CA-ASTRAZENECA-2012SE78223

PATIENT
  Age: 65 Year
  Sex: Female

DRUGS (1)
  1. ATACAND PLUS [Suspect]
     Dosage: 16/12.5 MG, ONCE DAILY
     Route: 048

REACTIONS (2)
  - Malignant melanoma [Unknown]
  - Back pain [Not Recovered/Not Resolved]
